FAERS Safety Report 13969658 (Version 3)
Quarter: 2017Q3

REPORT INFORMATION
  Report Type: Spontaneous
  Country: JP (occurrence: JP)
  Receive Date: 20170914
  Receipt Date: 20170929
  Transmission Date: 20171128
  Serious: Yes (Hospitalization, Other)
  Sender: FDA-Public Use
  Company Number: JP-GLAXOSMITHKLINE-JP2017JPN140844

PATIENT
  Age: 78 Year
  Sex: Female
  Weight: 41 kg

DRUGS (29)
  1. BONVIVA [Concomitant]
     Active Substance: IBANDRONATE SODIUM
     Indication: OSTEOPOROSIS
     Dosage: 1 MG, UNK
     Dates: start: 20141024
  2. NATRIX [Concomitant]
     Active Substance: INDAPAMIDE
     Indication: HYPERTENSION
     Dosage: 2 MG, QD
  3. ABOCOAT [Concomitant]
     Indication: ECZEMA
     Dosage: UNK
     Dates: start: 201403
  4. AROTINOLOL HYDROCHLORIDE [Concomitant]
     Active Substance: AROTINOLOL HYDROCHLORIDE
     Indication: TREMOR
     Dosage: 5 MG, BID
     Dates: start: 20170407
  5. ROZEREM [Concomitant]
     Active Substance: RAMELTEON
     Indication: PARKINSON^S DISEASE
  6. TEARBALANCE [Concomitant]
     Active Substance: HYALURONATE SODIUM
     Indication: KERATITIS
     Dosage: UNK
     Dates: start: 201506
  7. LOXOPROFEN SODIUM HYDRATE [Concomitant]
     Active Substance: LOXOPROFEN SODIUM DIHYDRATE
     Indication: BACK PAIN
     Dosage: 60 MG, TID
     Dates: start: 201705
  8. REQUIP [Suspect]
     Active Substance: ROPINIROLE HYDROCHLORIDE
     Dosage: 8 MG, 1D
     Route: 048
     Dates: start: 20170816, end: 20170901
  9. AROTINOLOL HYDROCHLORIDE [Concomitant]
     Active Substance: AROTINOLOL HYDROCHLORIDE
     Indication: PARKINSON^S DISEASE
  10. REQUIP [Suspect]
     Active Substance: ROPINIROLE HYDROCHLORIDE
     Indication: PARKINSON^S DISEASE
     Dosage: 2 MG, 1D
     Route: 048
     Dates: start: 20170722, end: 20170728
  11. REQUIP [Suspect]
     Active Substance: ROPINIROLE HYDROCHLORIDE
     Dosage: 6 MG, 1D
     Route: 048
     Dates: start: 20170805, end: 20170815
  12. OVULANZE [Concomitant]
     Active Substance: OMEPRAZOLE
     Indication: GASTROOESOPHAGEAL REFLUX DISEASE
     Dosage: 20 MG, QD
  13. SUMILU STICK [Concomitant]
     Indication: BACK PAIN
     Dosage: UNK
     Dates: start: 201705
  14. MADOPAR [Concomitant]
     Active Substance: BENSERAZIDE HYDROCHLORIDE\LEVODOPA
     Indication: PARKINSON^S DISEASE
     Dosage: 100 MG, BID
     Dates: start: 20170412
  15. ROZEREM [Concomitant]
     Active Substance: RAMELTEON
     Indication: SLEEP DISORDER
     Dosage: 8 MG, QD
     Dates: start: 20141219
  16. PRORANON [Concomitant]
     Indication: CONJUNCTIVITIS
     Dosage: UNK
     Dates: start: 201506
  17. REBAMIPIDE [Concomitant]
     Active Substance: REBAMIPIDE
     Indication: GASTRITIS PROPHYLAXIS
     Dosage: 100 MG, TID
     Dates: start: 201705
  18. VICCILLIN [Concomitant]
     Active Substance: AMPICILLIN
     Dosage: 8 MG, 1D
     Dates: start: 20170908, end: 20170913
  19. REQUIP [Suspect]
     Active Substance: ROPINIROLE HYDROCHLORIDE
     Dosage: 4 MG, 1D
     Route: 048
     Dates: start: 20170903, end: 20170903
  20. NICERGOLINE [Concomitant]
     Active Substance: NICERGOLINE
     Indication: CEREBRAL INFARCTION
     Dosage: 5 MG, TID
     Dates: start: 20140613
  21. REQUIP [Suspect]
     Active Substance: ROPINIROLE HYDROCHLORIDE
     Dosage: 6 MG, 1D
     Route: 048
     Dates: start: 20170902, end: 20170902
  22. METHYCOBAL [Concomitant]
     Active Substance: METHYLCOBALAMIN
     Indication: NEUROPATHY PERIPHERAL
     Dosage: 500 ?G, TID
     Dates: start: 201705
  23. BETANIS [Concomitant]
     Active Substance: MIRABEGRON
     Indication: HYPERTONIC BLADDER
     Dosage: 50 MG, QD
     Dates: start: 201408
  24. REQUIP [Suspect]
     Active Substance: ROPINIROLE HYDROCHLORIDE
     Dosage: 4 MG, 1D
     Route: 048
     Dates: start: 20170729, end: 20170804
  25. REQUIP [Suspect]
     Active Substance: ROPINIROLE HYDROCHLORIDE
     Dosage: 2 MG, 1D
     Route: 048
     Dates: start: 20170904, end: 20170907
  26. LOXOPROFEN SODIUM HYDRATE [Concomitant]
     Active Substance: LOXOPROFEN SODIUM DIHYDRATE
     Indication: MUSCULOSKELETAL PAIN
  27. SUMILU STICK [Concomitant]
     Indication: MUSCULOSKELETAL PAIN
  28. FEXOFENADINE HYDROCHLORIDE. [Concomitant]
     Active Substance: FEXOFENADINE HYDROCHLORIDE
     Indication: ECZEMA
     Dosage: 60 MG, BID
     Dates: start: 20170725
  29. VICCILLIN [Concomitant]
     Active Substance: AMPICILLIN
     Indication: PNEUMONIA
     Dosage: 8 MG, 1D
     Dates: start: 20170706, end: 20170713

REACTIONS (2)
  - Pneumonia [Recovered/Resolved]
  - Hyperthermia [Recovered/Resolved]

NARRATIVE: CASE EVENT DATE: 20170908
